FAERS Safety Report 6135466-2 (Version None)
Quarter: 2009Q1

REPORT INFORMATION
  Report Type: 
  Country: None (occurrence: None)
  Receive Date: 20090327
  Receipt Date: 20090323
  Transmission Date: 20090719
  Serious: Yes (Life-Threatening, Hospitalization)
  Sender: FDA-Public Use
  Company Number: A0761114A

PATIENT
  Sex: Female

DRUGS (2)
  1. TETANUS SHOT [Suspect]
     Indication: PROPHYLAXIS
     Route: 065
  2. CLAVULIN [Suspect]
     Route: 065

REACTIONS (14)
  - BLISTER [None]
  - EYE SWELLING [None]
  - EYELID OEDEMA [None]
  - FEELING ABNORMAL [None]
  - HEADACHE [None]
  - MALAISE [None]
  - PAIN [None]
  - PULMONARY FUNCTION TEST DECREASED [None]
  - PYREXIA [None]
  - RASH GENERALISED [None]
  - RASH MACULAR [None]
  - SKIN EXFOLIATION [None]
  - STEVENS-JOHNSON SYNDROME [None]
  - TOXIC EPIDERMAL NECROLYSIS [None]
